FAERS Safety Report 11699904 (Version 2)
Quarter: 2015Q4

REPORT INFORMATION
  Report Type: Spontaneous
  Country: US (occurrence: US)
  Receive Date: 20151105
  Receipt Date: 20151210
  Transmission Date: 20160304
  Serious: Yes (Hospitalization)
  Sender: FDA-Public Use
  Company Number: US-BEH-2015055269

PATIENT
  Age: 54 Year
  Sex: Female
  Weight: 106 kg

DRUGS (26)
  1. VITAMIN D3 [Concomitant]
     Active Substance: CHOLECALCIFEROL
  2. MULTIVITAMIN [Concomitant]
     Active Substance: VITAMINS
  3. DIPHENHYDRAMINE. [Concomitant]
     Active Substance: DIPHENHYDRAMINE
  4. SOMA [Concomitant]
     Active Substance: CARISOPRODOL
  5. HIZENTRA [Suspect]
     Active Substance: HUMAN IMMUNOGLOBULIN G
     Indication: IMMUNODEFICIENCY
     Dosage: 4 GM 20 ML VIAL
     Route: 058
     Dates: start: 20140422
  6. GINSENG [Concomitant]
     Active Substance: ASIAN GINSENG
  7. LORTAB [Concomitant]
     Active Substance: ACETAMINOPHEN\HYDROCODONE BITARTRATE
  8. NORCO [Concomitant]
     Active Substance: ACETAMINOPHEN\HYDROCODONE BITARTRATE
  9. NEURONTIN [Concomitant]
     Active Substance: GABAPENTIN
  10. PROTEIN SUPPLEMENTS [Concomitant]
     Active Substance: PROTEIN
  11. BIOTIN [Concomitant]
     Active Substance: BIOTIN
  12. VITAMIN E [Concomitant]
     Active Substance: .ALPHA.-TOCOPHEROL
  13. POTASSIUM [Concomitant]
     Active Substance: POTASSIUM
  14. THYROID HORMONES [Concomitant]
     Active Substance: UNSPECIFIED INGREDIENT
  15. NIACIN. [Concomitant]
     Active Substance: NIACIN
  16. XOPENEX [Concomitant]
     Active Substance: LEVALBUTEROL HYDROCHLORIDE
  17. SINGULAIR [Concomitant]
     Active Substance: MONTELUKAST SODIUM
  18. EPIPEN [Concomitant]
     Active Substance: EPINEPHRINE
  19. ADVAIR HFA [Concomitant]
     Active Substance: FLUTICASONE PROPIONATE\SALMETEROL XINAFOATE
  20. ZYRTEC [Concomitant]
     Active Substance: CETIRIZINE HYDROCHLORIDE
  21. COQ [Concomitant]
  22. ACYCLOVIR. [Concomitant]
     Active Substance: ACYCLOVIR
  23. OSTEO BI FLEX [Concomitant]
  24. NASACORT [Concomitant]
     Active Substance: TRIAMCINOLONE ACETONIDE
  25. BETAMETHASONE. [Concomitant]
     Active Substance: BETAMETHASONE
  26. VITAMIN B [Concomitant]
     Active Substance: VITAMIN B

REACTIONS (2)
  - Diverticulitis [Recovering/Resolving]
  - Kidney infection [Unknown]

NARRATIVE: CASE EVENT DATE: 20150917
